FAERS Safety Report 11649200 (Version 1)
Quarter: 2015Q4

REPORT INFORMATION
  Report Type: Spontaneous
  Country: DE (occurrence: DE)
  Receive Date: 20151021
  Receipt Date: 20151021
  Transmission Date: 20160304
  Serious: Yes (Other)
  Sender: FDA-Public Use
  Company Number: DE-PFIZER INC-2015351121

PATIENT
  Sex: Female

DRUGS (1)
  1. SORTIS [Suspect]
     Active Substance: ATORVASTATIN

REACTIONS (1)
  - Helicobacter infection [Unknown]
